FAERS Safety Report 17743633 (Version 3)
Quarter: 2024Q2

REPORT INFORMATION
  Report Type: Spontaneous
  Country: US (occurrence: None)
  Receive Date: 20200505
  Receipt Date: 20240418
  Transmission Date: 20240716
  Serious: No
  Sender: FDA-Public Use
  Company Number: US-ROCHE-1938623

PATIENT
  Age: 71 Year
  Sex: Male
  Weight: 135.75 kg

DRUGS (11)
  1. ESBRIET [Suspect]
     Active Substance: PIRFENIDONE
     Indication: Idiopathic pulmonary fibrosis
     Dosage: 3 CAPSULES 3 TIMES PER DAY ;ONGOING: YES
     Route: 048
     Dates: start: 20170428
  2. ESBRIET [Suspect]
     Active Substance: PIRFENIDONE
     Indication: Idiopathic pulmonary fibrosis
     Dosage: TID
     Route: 048
     Dates: start: 201910
  3. TAMSULOSIN [Concomitant]
     Active Substance: TAMSULOSIN
     Dosage: ONGOING:YES
     Route: 048
  4. GLIMEPIRIDE [Concomitant]
     Active Substance: GLIMEPIRIDE
     Indication: Type 2 diabetes mellitus
     Dosage: ONGOING:YES
     Route: 048
  5. HYDROCHLOROTHIAZIDE [Concomitant]
     Active Substance: HYDROCHLOROTHIAZIDE
     Indication: Blood pressure measurement
     Dosage: ONGOING:YES
     Route: 048
  6. AMLODIPINE [Concomitant]
     Active Substance: AMLODIPINE BESYLATE
     Indication: Blood pressure measurement
     Dosage: ONGOING:YES
     Route: 048
  7. PANTOPRAZOLE [Concomitant]
     Active Substance: PANTOPRAZOLE
     Indication: Gastrooesophageal reflux disease
     Dosage: ONGOING:YES
     Route: 048
  8. PIOGLITAZONE [Concomitant]
     Active Substance: PIOGLITAZONE
     Dosage: ONGOING:YES
     Route: 048
  9. LOSARTAN [Concomitant]
     Active Substance: LOSARTAN
     Indication: Blood pressure measurement
     Dosage: ONGOING:YES
     Route: 048
  10. OXYBUTYNIN [Concomitant]
     Active Substance: OXYBUTYNIN\OXYBUTYNIN CHLORIDE
     Dosage: ONGOING:YES
     Route: 048
  11. ASPIRIN [Concomitant]
     Active Substance: ASPIRIN
     Dosage: SOMETIMES SKIPS DAYS, BUT GENERALLY TAKES DAILY ;ONGOING: YES
     Route: 048

REACTIONS (5)
  - Flatulence [Not Recovered/Not Resolved]
  - Weight decreased [Not Recovered/Not Resolved]
  - Abdominal pain upper [Unknown]
  - Dyspepsia [Not Recovered/Not Resolved]
  - Sinus disorder [Unknown]

NARRATIVE: CASE EVENT DATE: 20170428
